FAERS Safety Report 6489876-4 (Version None)
Quarter: 2009Q4

REPORT INFORMATION
  Report Type: 
  Country: None (occurrence: None)
  Receive Date: 20091211
  Receipt Date: 20091208
  Transmission Date: 20100525
  Serious: Yes (Death, Hospitalization, Other)
  Sender: FDA-Public Use
  Company Number: FR-JNJFOC-20091202279

PATIENT
  Sex: Female

DRUGS (10)
  1. HALDOL [Suspect]
     Indication: ANXIETY
     Route: 048
     Dates: start: 20090707, end: 20090818
  2. LASILIX [Suspect]
     Indication: CARDIAC FAILURE
     Route: 048
     Dates: start: 20090727, end: 20090818
  3. DIFFU K [Concomitant]
     Indication: CARDIAC FAILURE
     Route: 065
  4. INIPOMP [Concomitant]
     Route: 065
  5. ZOPICLONE [Concomitant]
     Route: 065
  6. PAROXETINE [Concomitant]
     Route: 065
  7. DILTIAZEM [Concomitant]
     Route: 065
  8. SYMBICORT [Concomitant]
     Route: 065
  9. LECTIN [Concomitant]
     Route: 065
  10. CARTROL [Concomitant]
     Route: 065

REACTIONS (3)
  - CARDIAC FAILURE [None]
  - SEPTIC SHOCK [None]
  - STEVENS-JOHNSON SYNDROME [None]
